FAERS Safety Report 5412386-X (Version None)
Quarter: 2007Q3

REPORT INFORMATION
  Report Type: 
  Country: None (occurrence: None)
  Receive Date: 20070713
  Receipt Date: 20070504
  Transmission Date: 20080115
  Serious: No
  Sender: FDA-Public Use
  Company Number: 2007SP001678

PATIENT

DRUGS (2)
  1. LUNESTA [Suspect]
     Dosage: 2 MG; ORAL, 3 MG; ORAL
     Route: 048
  2. BENZODIAZEPINE DERIVATIVES [Concomitant]

REACTIONS (2)
  - DRUG INEFFECTIVE [None]
  - INSOMNIA [None]
